FAERS Safety Report 26036306 (Version 1)
Quarter: 2025Q4

REPORT INFORMATION
  Report Type: Spontaneous
  Country: GB (occurrence: GB)
  Receive Date: 20251112
  Receipt Date: 20251112
  Transmission Date: 20260118
  Serious: Yes (Death, Other)
  Sender: PFIZER
  Company Number: GB-NORGINE LIMITED-NOR202503844

PATIENT
  Age: 39 Year
  Sex: Female

DRUGS (1)
  1. MISOPROSTOL [Suspect]
     Active Substance: MISOPROSTOL
     Indication: Labour induction
     Dosage: GIVEN EIGHT TIMES THE RECOMMENDED DOSE

REACTIONS (6)
  - Overdose [Fatal]
  - Anaphylactoid syndrome of pregnancy [Fatal]
  - Stillbirth [Unknown]
  - Cardiac arrest [Unknown]
  - Uterine hypertonus [Unknown]
  - Off label use [Unknown]
